FAERS Safety Report 16570211 (Version 1)
Quarter: 2019Q3

REPORT INFORMATION
  Report Type: Spontaneous
  Country: CN (occurrence: CN)
  Receive Date: 20190715
  Receipt Date: 20190715
  Transmission Date: 20191004
  Serious: Yes (Other)
  Sender: FDA-Public Use
  Company Number: CN-ROCHE-2355492

PATIENT
  Sex: Female

DRUGS (2)
  1. PERTUZUMAB. [Suspect]
     Active Substance: PERTUZUMAB
     Indication: BREAST CANCER
     Route: 041
  2. TRASTUZUMAB. [Concomitant]
     Active Substance: TRASTUZUMAB
     Indication: BREAST CANCER
     Route: 041
     Dates: start: 201811

REACTIONS (1)
  - Pneumonia [Unknown]
